FAERS Safety Report 16263283 (Version 11)
Quarter: 2021Q2

REPORT INFORMATION
  Report Type: Spontaneous
  Country: US (occurrence: US)
  Receive Date: 20190502
  Receipt Date: 20210406
  Transmission Date: 20210716
  Serious: Yes (Hospitalization, Other)
  Sender: FDA-Public Use
  Company Number: US-SA-2019SA120085

PATIENT
  Age: 39 Year
  Sex: Female

DRUGS (3)
  1. DUPIXENT [Suspect]
     Active Substance: DUPILUMAB
     Dosage: 300 MG, QOW
     Route: 058
     Dates: start: 2019
  2. DUPIXENT [Suspect]
     Active Substance: DUPILUMAB
     Indication: DERMATITIS ATOPIC
     Dosage: 600 MG, 1X
     Route: 058
     Dates: start: 201903, end: 201903
  3. DUPIXENT [Suspect]
     Active Substance: DUPILUMAB
     Dosage: 300 MG, QOW
     Route: 058

REACTIONS (12)
  - Hysterectomy [Unknown]
  - Pneumonia [Unknown]
  - Haemorrhoid operation [Unknown]
  - Alopecia [Unknown]
  - Dyspnoea [Unknown]
  - Thyroidectomy [Unknown]
  - Alopecia areata [Unknown]
  - Condition aggravated [Unknown]
  - Coronary artery occlusion [Unknown]
  - Product dose omission issue [Unknown]
  - Surgery [Unknown]
  - Exposure to fungus [Unknown]

NARRATIVE: CASE EVENT DATE: 2019
